FAERS Safety Report 4712370-5 (Version None)
Quarter: 2005Q3

REPORT INFORMATION
  Report Type: 
  Country: None (occurrence: None)
  Receive Date: 20050711
  Receipt Date: 20050629
  Transmission Date: 20060218
  Serious: Yes (Other)
  Sender: FDA-Public Use
  Company Number: 2005015853

PATIENT
  Age: 89 Year
  Sex: Female
  Weight: 40.8237 kg

DRUGS (6)
  1. DETROL LA [Suspect]
     Indication: URINARY INCONTINENCE
     Dosage: 4 MG (4 MG, 1 IN 1 D) ORAL
     Route: 048
     Dates: start: 20041116
  2. PROCARDIA XL [Concomitant]
  3. DEMADEX [Concomitant]
  4. LANOXIN [Concomitant]
  5. ISOSORBIDE [Concomitant]
  6. ASPIRIN [Concomitant]

REACTIONS (5)
  - BLOOD GLUCOSE DECREASED [None]
  - DEHYDRATION [None]
  - DRUG DOSE OMISSION [None]
  - DRY MOUTH [None]
  - VISUAL DISTURBANCE [None]
